FAERS Safety Report 7888457-5 (Version None)
Quarter: 2011Q4

REPORT INFORMATION
  Report Type: 
  Country: None (occurrence: None)
  Receive Date: 20111103
  Receipt Date: 20111031
  Transmission Date: 20120403
  Serious: Yes (Death, Life-Threatening, Hospitalization, Other)
  Sender: FDA-Public Use
  Company Number: PHHO2011TW03299

PATIENT
  Sex: Male
  Weight: 55.4 kg

DRUGS (18)
  1. METHYLPREDNISOLONE [Suspect]
  2. EVEROLIMUS [Suspect]
     Indication: HEPATIC NEOPLASM MALIGNANT
     Dosage: 7.5 MG, QD
     Route: 048
     Dates: start: 20101111, end: 20110214
  3. ALBUMIN (HUMAN) [Concomitant]
     Indication: HYPOALBUMINAEMIA
  4. HUMULIN R [Concomitant]
     Indication: DIABETES MELLITUS
  5. URSODIOL [Concomitant]
     Indication: CHOLELITHIASIS
  6. BUDESONIDE [Concomitant]
     Indication: COUGH
  7. SIMETHICONE [Concomitant]
     Indication: ABDOMINAL DISTENSION
  8. PANTOPRAZOLE [Concomitant]
  9. METFORMIN HCL [Concomitant]
     Indication: DIABETES MELLITUS
  10. BROWN MIXTURE [Concomitant]
     Indication: COUGH
     Dosage: UNK
     Dates: start: 20110201
  11. TRANEXAMIC ACID [Concomitant]
     Indication: HAEMATURIA
  12. HUMULIN N [Concomitant]
     Indication: DIABETES MELLITUS
  13. PROHEPARUM [Concomitant]
     Indication: HEPATIC CIRRHOSIS
  14. AMINO ACIDS [Concomitant]
     Indication: DECREASED APPETITE
  15. LORAZEPAM [Concomitant]
     Indication: INSOMNIA
  16. GLIMEPIRIDE [Concomitant]
     Indication: DIABETES MELLITUS
  17. ROSUVASTATIN [Concomitant]
     Indication: HYPERCHOLESTEROLAEMIA
  18. ENTECAVIR [Concomitant]
     Indication: HEPATITIS B

REACTIONS (12)
  - DYSPNOEA EXERTIONAL [None]
  - BRONCHIOLITIS [None]
  - LUNG INFILTRATION [None]
  - INFECTION [None]
  - MALAISE [None]
  - COUGH [None]
  - INTERSTITIAL LUNG DISEASE [None]
  - RENAL IMPAIRMENT [None]
  - HEPATITIS B [None]
  - RESPIRATORY DISTRESS [None]
  - ABDOMINAL PAIN [None]
  - HEPATIC FUNCTION ABNORMAL [None]
